FAERS Safety Report 17666248 (Version 1)
Quarter: 2020Q2

REPORT INFORMATION
  Report Type: Spontaneous
  Country: IT (occurrence: IT)
  Receive Date: 20200414
  Receipt Date: 20200414
  Transmission Date: 20200713
  Serious: Yes (Other)
  Sender: FDA-Public Use
  Company Number: IT-AMGEN-ITASP2020059572

PATIENT
  Age: 62 Year
  Sex: Female
  Weight: 42 kg

DRUGS (1)
  1. PROLIA [Suspect]
     Active Substance: DENOSUMAB
     Indication: OSTEOPOROTIC FRACTURE
     Dosage: 60 MILLIGRAM
     Route: 058
     Dates: start: 20151218, end: 20190718

REACTIONS (1)
  - Osteonecrosis [Recovered/Resolved]

NARRATIVE: CASE EVENT DATE: 20200120
